FAERS Safety Report 10206700 (Version 1)
Quarter: 2014Q2

REPORT INFORMATION
  Report Type: Spontaneous
  Country: DK (occurrence: DK)
  Receive Date: 20140530
  Receipt Date: 20140530
  Transmission Date: 20141212
  Serious: Yes (Congenital Anomaly)
  Sender: FDA-Public Use
  Company Number: DK-JNJFOC-20140513863

PATIENT
  Sex: 0

DRUGS (1)
  1. TOPIRAMATE [Suspect]
     Indication: EPILEPSY
     Route: 064

REACTIONS (2)
  - Congenital anomaly [Unknown]
  - Foetal exposure during pregnancy [Recovered/Resolved]
